FAERS Safety Report 9741968 (Version 1)
Quarter: 2013Q4

REPORT INFORMATION
  Report Type: Spontaneous
  Country: US (occurrence: US)
  Receive Date: 20131210
  Receipt Date: 20131210
  Transmission Date: 20140711
  Serious: No
  Sender: FDA-Public Use
  Company Number: US-PFIZER INC-2013349100

PATIENT
  Sex: Male

DRUGS (6)
  1. SUTENT [Suspect]
     Dosage: UNK
  2. METOPROLOL [Concomitant]
     Dosage: UNK
  3. LEXAPRO [Concomitant]
     Dosage: UNK
  4. PERCOCET [Concomitant]
     Dosage: UNK, AS NEEDED
  5. FLUDROCORTISONE [Concomitant]
     Dosage: UNK
  6. HYDROCORTISONE [Concomitant]
     Dosage: UNK

REACTIONS (1)
  - Pain [Unknown]
